FAERS Safety Report 24381485 (Version 1)
Quarter: 2024Q4

REPORT INFORMATION
  Report Type: Spontaneous
  Country: US (occurrence: US)
  Receive Date: 20241001
  Receipt Date: 20241001
  Transmission Date: 20250115
  Serious: Yes (Death, Other)
  Sender: GLENMARK
  Company Number: US-GLENMARK PHARMACEUTICALS-2024GMK094148

PATIENT

DRUGS (1)
  1. POTASSIUM CHLORIDE EXTENDED RELEASE [Suspect]
     Active Substance: POTASSIUM CHLORIDE
     Indication: Product used for unknown indication
     Dosage: 10 MILLIEQUIVALENT FIVE TIMES A DAY (TOTAL DAILY DOSE: 50 MEQ)
     Route: 065

REACTIONS (2)
  - Death [Fatal]
  - Recalled product administered [Unknown]

NARRATIVE: CASE EVENT DATE: 20230701
